FAERS Safety Report 10089311 (Version 1)
Quarter: 2014Q2

REPORT INFORMATION
  Report Type: Spontaneous
  Country: US (occurrence: None)
  Receive Date: 20140418
  Receipt Date: 20140418
  Transmission Date: 20141212
  Serious: No
  Sender: FDA-Public Use
  Company Number: None

PATIENT
  Age: 55 Year
  Sex: Female
  Weight: 129.73 kg

DRUGS (5)
  1. ALPRAZOLAM [Suspect]
     Indication: ANXIETY
     Dosage: 0.5 BID
  2. ZOLPIDEM [Suspect]
     Indication: INSOMNIA
     Dosage: CR 12.5 HS
  3. ZOLMITRIPTAN [Concomitant]
  4. VALSARTAN [Concomitant]
  5. AMLODIPIN [Concomitant]

REACTIONS (5)
  - Abdominal pain [None]
  - Fatigue [None]
  - Insomnia [None]
  - Gastrooesophageal reflux disease [None]
  - Coeliac disease [None]
